FAERS Safety Report 5565466-2 (Version None)
Quarter: 2007Q4

REPORT INFORMATION
  Report Type: 
  Country: None (occurrence: None)
  Receive Date: 20071218
  Receipt Date: 20071211
  Transmission Date: 20080405
  Serious: Yes (Hospitalization)
  Sender: FDA-Public Use
  Company Number: GB-PFIZER INC-2007090985

PATIENT
  Age: 71 Year
  Sex: Female

DRUGS (2)
  1. CLINDAMYCIN HYDROCHLORIDE [Suspect]
     Indication: ENDOCARDITIS PROPHYLAXIS
     Dates: start: 19980615, end: 19980615
  2. ERYTHROMYCIN [Suspect]
     Indication: ENDOCARDITIS PROPHYLAXIS
     Dosage: DAILY DOSE:1500MG
     Dates: start: 19980615, end: 19980615

REACTIONS (2)
  - CLOSTRIDIUM DIFFICILE COLITIS [None]
  - ORTHOSTATIC HYPOTENSION [None]
